FAERS Safety Report 8429539-9 (Version None)
Quarter: 2012Q2

REPORT INFORMATION
  Report Type: 
  Country: None (occurrence: None)
  Receive Date: 20120612
  Receipt Date: 20120601
  Transmission Date: 20120825
  Serious: Yes (Death)
  Sender: FDA-Public Use
  Company Number: JP-PFIZER INC-2012131860

PATIENT
  Age: 23 Year
  Sex: Male

DRUGS (7)
  1. IFOSFAMIDE [Concomitant]
     Dosage: UNK
     Route: 042
  2. ETOPOSIDE [Concomitant]
     Dosage: UNK
     Route: 041
  3. CARBOPLATIN [Concomitant]
     Route: 041
  4. DOXORUBICIN HYDROCHLORIDE [Suspect]
     Indication: BONE SARCOMA
     Dosage: UNK
     Route: 042
     Dates: start: 20010925
  5. METHOTREXATE [Concomitant]
     Dosage: UNK
     Route: 048
  6. CISPLATIN [Concomitant]
     Dosage: UNK
     Route: 041
  7. CYCLOPHOSPHAMIDE [Concomitant]
     Dosage: UNK
     Route: 048

REACTIONS (3)
  - CARDIAC FAILURE [None]
  - CARDIO-RESPIRATORY ARREST [None]
  - CARDIOMYOPATHY [None]
